FAERS Safety Report 16681880 (Version 2)
Quarter: 2019Q3

REPORT INFORMATION
  Report Type: Report from Study
  Country: US (occurrence: US)
  Receive Date: 20190808
  Receipt Date: 20190823
  Transmission Date: 20191004
  Serious: No
  Sender: FDA-Public Use
  Company Number: US-BEH-2019105165

PATIENT
  Age: 59 Year
  Sex: Female
  Weight: 60.77 kg

DRUGS (1)
  1. ONE DOUBLE-ENDED NEEDLE FOR RECONSTITUTION/ADMINISTRATION SET(IVIG LYOPHILIZED) [Suspect]
     Active Substance: HUMAN IMMUNOGLOBULIN G
     Route: 065

REACTIONS (4)
  - Migraine [Unknown]
  - Retinal migraine [Unknown]
  - Dizziness [Unknown]
  - Headache [Unknown]

NARRATIVE: CASE EVENT DATE: 201807
